FAERS Safety Report 12221586 (Version 1)
Quarter: 2016Q1

REPORT INFORMATION
  Report Type: Spontaneous
  Country: CH (occurrence: GB)
  Receive Date: 20160330
  Receipt Date: 20160330
  Transmission Date: 20160526
  Serious: Yes (Hospitalization)
  Sender: FDA-Public Use
  Company Number: CH-LPDUSPRD-20160261

PATIENT
  Sex: Female

DRUGS (1)
  1. FERINJECT [Suspect]
     Active Substance: FERRIC CARBOXYMALTOSE
     Dosage: DOSE NOT PROVIDED
     Route: 041
     Dates: start: 201511

REACTIONS (4)
  - Swelling [Unknown]
  - Extravasation [Unknown]
  - Exposure during pregnancy [Unknown]
  - Skin hyperpigmentation [Unknown]
